FAERS Safety Report 13317711 (Version 19)
Quarter: 2020Q4

REPORT INFORMATION
  Report Type: Spontaneous
  Country: US (occurrence: US)
  Receive Date: 20170310
  Receipt Date: 20201224
  Transmission Date: 20210113
  Serious: Yes (Hospitalization, Other)
  Sender: FDA-Public Use
  Company Number: US-PFIZER INC-2017095478

PATIENT
  Age: 63 Year
  Sex: Female
  Weight: 57 kg

DRUGS (17)
  1. XELJANZ XR [Suspect]
     Active Substance: TOFACITINIB CITRATE
     Indication: RHEUMATOID ARTHRITIS
     Dosage: 11 MG, 1X/DAY
     Route: 048
  2. VITAMIN D [Concomitant]
     Active Substance: VITAMIN D NOS
     Dosage: 2000 IU, DAILY (2 GEL PILLS BY MOUTH DAILY)
     Route: 048
  3. ALPRAZOLAM. [Concomitant]
     Active Substance: ALPRAZOLAM
     Indication: HISTRIONIC PERSONALITY DISORDER
     Dosage: 0.5 DF, 2X/DAY
     Route: 048
  4. VALACICLOVIR [Concomitant]
     Active Substance: VALACYCLOVIR HYDROCHLORIDE
     Indication: INFECTION
     Dosage: 500 MG, DAILY
     Route: 048
     Dates: start: 2016
  5. XELJANZ XR [Suspect]
     Active Substance: TOFACITINIB CITRATE
     Dosage: 11 MG, 1X/DAY (ABOUT 5 OR 6AM IN THE MORNING)
     Route: 048
  6. FOLIC ACID. [Concomitant]
     Active Substance: FOLIC ACID
     Dosage: 2 MG, DAILY (2 TABLETS BY MOUTH DAILY)
     Route: 048
  7. BIOTIN [Concomitant]
     Active Substance: BIOTIN
     Indication: ALOPECIA
     Dosage: 5000 UG, DAILY (IN THE MORNING)
     Route: 048
  8. XELJANZ XR [Suspect]
     Active Substance: TOFACITINIB CITRATE
     Dosage: 11 MG, 1X/DAY
     Route: 048
  9. FISH OIL [Concomitant]
     Active Substance: FISH OIL
     Indication: DRY EYE
     Dosage: 2000 MG, DAILY
     Route: 048
  10. ROSUVASTATIN CALCIUM. [Concomitant]
     Active Substance: ROSUVASTATIN CALCIUM
     Indication: BLOOD CHOLESTEROL INCREASED
     Dosage: 20 MG, 1X/DAY (AT NIGHT)
     Route: 048
  11. ADDERALL [Concomitant]
     Active Substance: AMPHETAMINE ASPARTATE\AMPHETAMINE SULFATE\DEXTROAMPHETAMINE SACCHARATE\DEXTROAMPHETAMINE SULFATE
     Indication: DISTURBANCE IN ATTENTION
     Dosage: 30 MG, DAILY
     Route: 048
  12. CALCIUM [Concomitant]
     Active Substance: CALCIUM
     Dosage: 800 MG, DAILY (2 TABLETS BY MOUTH IN THE MORNING)
     Route: 048
  13. VITAMIN B12 [Concomitant]
     Active Substance: CYANOCOBALAMIN
     Indication: ASTHENIA
     Dosage: 1000 UG, DAILY
     Route: 048
  14. CENTRUM SILVER [Concomitant]
     Active Substance: MINERALS\VITAMINS
     Indication: HYPOVITAMINOSIS
     Dosage: 1 DF, DAILY
     Route: 048
  15. MORPHINE SULFATE. [Concomitant]
     Active Substance: MORPHINE SULFATE
     Indication: PAIN
     Dosage: 90 MG, AS NEEDED (TABLETS BY MOUTH A DAY AS NEEDED)
  16. MELOXICAM. [Concomitant]
     Active Substance: MELOXICAM
     Indication: NECK PAIN
     Dosage: AS NEEDED (15MG, 1/2 TABLET BY MOUTH IN THE MORNING, 1/2 TABLET BY MOUTH AT NIGHT)
     Route: 048
     Dates: start: 20180303
  17. MELOXICAM. [Concomitant]
     Active Substance: MELOXICAM
     Indication: BACK PAIN

REACTIONS (28)
  - Malaise [Unknown]
  - Arthralgia [Unknown]
  - Pain in extremity [Recovering/Resolving]
  - Ear infection [Unknown]
  - Tooth fracture [Unknown]
  - Nausea [Unknown]
  - Stress [Not Recovered/Not Resolved]
  - Nervousness [Unknown]
  - Road traffic accident [Unknown]
  - Osteopenia [Unknown]
  - Cough [Not Recovered/Not Resolved]
  - Musculoskeletal stiffness [Unknown]
  - Crying [Unknown]
  - Functional gastrointestinal disorder [Unknown]
  - Weight increased [Unknown]
  - Peripheral swelling [Unknown]
  - Dizziness [Unknown]
  - Neoplasm malignant [Not Recovered/Not Resolved]
  - Fatigue [Unknown]
  - Delirium [Unknown]
  - Influenza [Not Recovered/Not Resolved]
  - Lentigo [Unknown]
  - Pollakiuria [Unknown]
  - Muscle strain [Unknown]
  - Joint swelling [Unknown]
  - Pain [Unknown]
  - Cerebral disorder [Not Recovered/Not Resolved]
  - Emotional disorder [Not Recovered/Not Resolved]

NARRATIVE: CASE EVENT DATE: 201802
